FAERS Safety Report 14750453 (Version 1)
Quarter: 2018Q2

REPORT INFORMATION
  Report Type: Spontaneous
  Country: FR (occurrence: FR)
  Receive Date: 20180412
  Receipt Date: 20180412
  Transmission Date: 20180711
  Serious: Yes (Other)
  Sender: FDA-Public Use
  Company Number: FR-MERCK KGAA-2045630

PATIENT
  Age: 31 Year
  Sex: Female

DRUGS (1)
  1. NOVOTHYROX [Suspect]
     Active Substance: LEVOTHYROXINE SODIUM
     Indication: THYROID MASS
     Dates: start: 2017, end: 201710

REACTIONS (26)
  - Nausea [Recovering/Resolving]
  - Fatigue [Recovering/Resolving]
  - Abdominal pain upper [Recovering/Resolving]
  - Emotional disorder [Recovering/Resolving]
  - Loss of personal independence in daily activities [Recovering/Resolving]
  - Personal relationship issue [Recovering/Resolving]
  - Blood thyroid stimulating hormone decreased [Recovering/Resolving]
  - Extraocular muscle paresis [Recovering/Resolving]
  - Alopecia [Recovering/Resolving]
  - Headache [Recovering/Resolving]
  - Aggression [Recovering/Resolving]
  - Lacrimation increased [Recovering/Resolving]
  - Asthenia [Recovering/Resolving]
  - Eye pain [Recovering/Resolving]
  - High density lipoprotein decreased [Recovering/Resolving]
  - Eye disorder [Recovering/Resolving]
  - Disturbance in attention [Recovering/Resolving]
  - Stress [Recovering/Resolving]
  - Migraine [Recovering/Resolving]
  - Strabismus [Recovering/Resolving]
  - Impaired driving ability [Recovering/Resolving]
  - Somnolence [Recovering/Resolving]
  - Affect lability [Recovering/Resolving]
  - Magnesium deficiency [Recovering/Resolving]
  - Impaired work ability [Recovering/Resolving]
  - Maternal exposure during pregnancy [None]

NARRATIVE: CASE EVENT DATE: 2017
